FAERS Safety Report 8902830 (Version 1)
Quarter: 2012Q4

REPORT INFORMATION
  Report Type: 
  Country: FR (occurrence: FR)
  Receive Date: 20121112
  Receipt Date: 20121112
  Transmission Date: 20130627
  Serious: Yes (Hospitalization)
  Sender: FDA-Public Use
  Company Number: FR-BRISTOL-MYERS SQUIBB COMPANY-17094616

PATIENT
  Age: 84 Year
  Sex: Male

DRUGS (14)
  1. SKENAN [Suspect]
     Indication: PAIN
     Dosage: 1DF:30mg morninig and 60 mg evening
     Route: 048
     Dates: start: 20120830, end: 20121004
  2. GLUCOPHAGE [Suspect]
  3. LYRICA [Suspect]
     Indication: PAIN
     Route: 048
     Dates: start: 20120809, end: 20121005
  4. OXYCONTIN [Suspect]
     Indication: PAIN
     Dosage: Evening 20mg oxycodone started on 06Oct12-08oct12 and 09Oct12
     Route: 048
     Dates: start: 20121004, end: 20121005
  5. VELCADE [Suspect]
     Indication: MULTIPLE MYELOMA
     Route: 042
     Dates: start: 20121004
  6. ALKERAN [Suspect]
     Dosage: from D1 to D4 Every 5 weeks
  7. PREDNISONE [Suspect]
     Dosage: from D1 to D4, every five weeks
  8. MOLSIDOMINE [Concomitant]
  9. DOLIPRANE [Concomitant]
  10. BISOPROLOL [Concomitant]
  11. PLAVIX [Concomitant]
  12. PRAVASTATINE [Concomitant]
  13. BACTRIM F [Concomitant]
  14. ZELITREX [Concomitant]

REACTIONS (3)
  - Confusional state [Recovering/Resolving]
  - Fall [Recovered/Resolved]
  - Disorientation [Recovered/Resolved]
